FAERS Safety Report 5750768-7 (Version None)
Quarter: 2008Q2

REPORT INFORMATION
  Report Type: 
  Country: None (occurrence: None)
  Receive Date: 20080528
  Receipt Date: 20080411
  Transmission Date: 20081010
  Serious: No
  Sender: FDA-Public Use
  Company Number: US-BAYER-200819745NA

PATIENT

DRUGS (1)
  1. MAGNEVIST [Suspect]
     Dosage: AS USED: 17 ML

REACTIONS (1)
  - NO ADVERSE EVENT [None]
